FAERS Safety Report 9167086 (Version 1)
Quarter: 2013Q1

REPORT INFORMATION
  Report Type: Spontaneous
  Country: US (occurrence: None)
  Receive Date: 20130314
  Receipt Date: 20130314
  Transmission Date: 20140127
  Serious: No
  Sender: FDA-Public Use
  Company Number: None

PATIENT
  Age: 37 Year
  Sex: Male
  Weight: 102.3 kg

DRUGS (1)
  1. QSYMIA [Suspect]
     Indication: OBESITY
     Route: 048
     Dates: start: 20130102, end: 20130109

REACTIONS (5)
  - Headache [None]
  - Vision blurred [None]
  - Lens dislocation [None]
  - Myopia [None]
  - Intraocular pressure increased [None]
